FAERS Safety Report 20907933 (Version 2)
Quarter: 2022Q2

REPORT INFORMATION
  Report Type: Spontaneous
  Country: CA (occurrence: CA)
  Receive Date: 20220602
  Receipt Date: 20220608
  Transmission Date: 20220720
  Serious: Yes (Other)
  Sender: FDA-Public Use
  Company Number: CA-GILEAD-2022-0582521

PATIENT
  Age: 50 Year
  Sex: Female
  Weight: 48.6 kg

DRUGS (1)
  1. TRODELVY [Suspect]
     Active Substance: SACITUZUMAB GOVITECAN-HZIY
     Indication: Triple negative breast cancer
     Dosage: 235 MG
     Route: 042
     Dates: start: 20220505

REACTIONS (5)
  - Device related sepsis [Unknown]
  - Cholangitis [Unknown]
  - Cellulitis [Unknown]
  - Radiation skin injury [Not Recovered/Not Resolved]
  - Rash pruritic [Unknown]

NARRATIVE: CASE EVENT DATE: 20220519
